FAERS Safety Report 6977283-7 (Version None)
Quarter: 2010Q3

REPORT INFORMATION
  Report Type: 
  Country: None (occurrence: None)
  Receive Date: 20100910
  Receipt Date: 20100827
  Transmission Date: 20110219
  Serious: No
  Sender: FDA-Public Use
  Company Number: B0630399A

PATIENT
  Sex: Female
  Weight: 51 kg

DRUGS (2)
  1. RELENZA [Suspect]
     Dosage: 20MG PER DAY
     Route: 055
     Dates: start: 20100127, end: 20100131
  2. ACETAMINOPHEN [Concomitant]
     Indication: ANTIPYRESIS
     Route: 048
     Dates: start: 20100127, end: 20100131

REACTIONS (1)
  - DRUG EXPOSURE DURING PREGNANCY [None]
